FAERS Safety Report 7032869-9 (Version None)
Quarter: 2010Q4

REPORT INFORMATION
  Report Type: 
  Country: None (occurrence: None)
  Receive Date: 20101007
  Receipt Date: 20100928
  Transmission Date: 20110411
  Serious: Yes (Other)
  Sender: FDA-Public Use
  Company Number: US-JNJFOC-20100908955

PATIENT
  Age: 58 Year
  Sex: Female
  Weight: 133.81 kg

DRUGS (5)
  1. TYLENOL (CAPLET) [Suspect]
     Route: 048
  2. TYLENOL (CAPLET) [Suspect]
     Indication: ARTHRALGIA
     Dosage: TOOK 2 CAPLETS, ONCE, ABOUT TWO YEARS AGO
     Route: 048
  3. SYNTHROID [Concomitant]
     Indication: THYROID DISORDER
     Dosage: TALES ONE DAILY FOR YEARS
  4. FEXOFENADINE HCL [Concomitant]
     Indication: MULTIPLE ALLERGIES
     Dosage: 1 DAILY FOR YEARS
  5. ANTI-HYPERTENSIVE [Concomitant]
     Indication: HYPERTENSION
     Dosage: 1 DAILY FOR YEARS

REACTIONS (2)
  - HAEMATOCHEZIA [None]
  - MUSCLE SPASMS [None]
